FAERS Safety Report 14595364 (Version 1)
Quarter: 2018Q1

REPORT INFORMATION
  Report Type: Spontaneous
  Country: US (occurrence: US)
  Receive Date: 20180302
  Receipt Date: 20180302
  Transmission Date: 20180509
  Serious: No
  Sender: FDA-Public Use
  Company Number: US-BIOGEN-2016BI00193879

PATIENT
  Age: 36 Year
  Sex: Female
  Weight: 72.64 kg

DRUGS (1)
  1. PLEGRIDY [Suspect]
     Active Substance: PEGINTERFERON BETA-1A
     Indication: MULTIPLE SCLEROSIS
     Route: 058
     Dates: start: 20151102, end: 20160211

REACTIONS (7)
  - Injection site erythema [Unknown]
  - Injection site erosion [Unknown]
  - Skin lesion [Unknown]
  - Injection site irritation [Unknown]
  - Injection site swelling [Unknown]
  - Injection site bruising [Not Recovered/Not Resolved]
  - Injection site scab [Unknown]

NARRATIVE: CASE EVENT DATE: 20151102
